FAERS Safety Report 6018794-0 (Version None)
Quarter: 2008Q4

REPORT INFORMATION
  Report Type: 
  Country: None (occurrence: None)
  Receive Date: 20081222
  Receipt Date: 20081204
  Transmission Date: 20090506
  Serious: Yes (Death, Hospitalization, Other)
  Sender: FDA-Public Use
  Company Number: DSU-2008-01420

PATIENT
  Age: 75 Year
  Sex: Female

DRUGS (15)
  1. BENICAR HCT [Suspect]
     Indication: DRUG USE FOR UNKNOWN INDICATION
     Dosage: 40/12.5 (QD) ,PER ORAL
     Route: 048
     Dates: start: 20080302
  2. INTERMUNE STUDY DRUG OR PLACEBO (CAPSULE) [Suspect]
     Indication: IDIOPATHIC PULMONARY FIBROSIS
     Dosage: 9 CAPSULES (3 DOSAGE FORMS, 3 CAPSULES TID) ,PER ORAL
     Route: 048
     Dates: start: 20061110, end: 20080814
  3. REGLAN (METOCLOPRAMIDE) (METOCLOPRAMIDE) [Concomitant]
  4. GUAIFENESIN / CODEINE (CODEINE PHOSPHATE, GUAIFENESIN) (CODEINE PHOSPH [Concomitant]
  5. BABY ASPIRIN (ACETYLSALICYLIC ACID) (ACETYLSALICYLIC ACID) [Concomitant]
  6. TEKTURNA [Concomitant]
  7. FELDENE (PIROXICAM) (PIROXICAM) [Concomitant]
  8. OMEPRAZOLE [Concomitant]
  9. CRESTOR [Concomitant]
  10. AMBIEN [Concomitant]
  11. ACTONEL (RISEDRONATE SODIUM) (RISEDRONATE SODIUM) [Concomitant]
  12. TESSALON PERLE (BENZONATATE) (BENZONATATE) [Concomitant]
  13. XANAX (ALPRAZOLAM) (ALPRAZOLAM) [Concomitant]
  14. DUO-NEB (SALBUTAMOL, IPRATROPIUM BROMIDE) (SALBUTAMOL, IPRATROPIUM BRO [Concomitant]
  15. LIDODERM (LIDOCAINE) (LIDOCAINE) [Concomitant]

REACTIONS (30)
  - ANAEMIA [None]
  - ANOREXIA [None]
  - ANXIETY [None]
  - ASTHENIA [None]
  - BLOOD CHLORIDE DECREASED [None]
  - BLOOD CREATINE PHOSPHOKINASE MB INCREASED [None]
  - BLOOD GLUCOSE INCREASED [None]
  - BRONCHOALVEOLAR LAVAGE ABNORMAL [None]
  - CARDIAC OUTPUT INCREASED [None]
  - CONDITION AGGRAVATED [None]
  - DEATH OF RELATIVE [None]
  - DEPRESSION [None]
  - FATIGUE [None]
  - HEADACHE [None]
  - HYPOKALAEMIA [None]
  - HYPONATRAEMIA [None]
  - INTERSTITIAL LUNG DISEASE [None]
  - LEFT VENTRICULAR HYPERTROPHY [None]
  - LUNG CONSOLIDATION [None]
  - MITRAL VALVE INCOMPETENCE [None]
  - PLATELET COUNT INCREASED [None]
  - PLEURAL EFFUSION [None]
  - PULMONARY ARTERY DILATATION [None]
  - PULMONARY FIBROSIS [None]
  - PULMONARY HYPERTENSION [None]
  - RESPIRATORY FAILURE [None]
  - SINUSITIS [None]
  - TRICUSPID VALVE INCOMPETENCE [None]
  - TROPONIN I INCREASED [None]
  - WHITE BLOOD CELL COUNT INCREASED [None]
